FAERS Safety Report 9353869 (Version 1)
Quarter: 2013Q2

REPORT INFORMATION
  Report Type: Spontaneous
  Country: FR (occurrence: FR)
  Receive Date: 20130618
  Receipt Date: 20130618
  Transmission Date: 20140414
  Serious: Yes (Hospitalization)
  Sender: FDA-Public Use
  Company Number: FR-ASTRAZENECA-2013SE42675

PATIENT
  Age: 77 Year
  Sex: Male

DRUGS (2)
  1. INEXIUM [Suspect]
     Route: 048
     Dates: start: 20130516, end: 20130522
  2. DAFALGAN [Suspect]
     Route: 048
     Dates: start: 20130516, end: 20130522

REACTIONS (2)
  - Leukopenia [Recovering/Resolving]
  - Neutropenia [Recovering/Resolving]
